FAERS Safety Report 5448671-5 (Version None)
Quarter: 2007Q3

REPORT INFORMATION
  Report Type: 
  Country: None (occurrence: None)
  Receive Date: 20070911
  Receipt Date: 20070906
  Transmission Date: 20080115
  Serious: Yes (Other)
  Sender: FDA-Public Use
  Company Number: CH-BAYER-200715227GDS

PATIENT
  Age: 47 Year
  Sex: Female
  Weight: 67 kg

DRUGS (10)
  1. NEXAVAR [Suspect]
     Indication: RENAL CELL CARCINOMA STAGE UNSPECIFIED
     Route: 048
     Dates: start: 20070424
  2. NEXAVAR [Suspect]
     Route: 048
     Dates: start: 20061201, end: 20070417
  3. BISOPROLOL FUMARATE [Concomitant]
     Indication: SUPRAVENTRICULAR TACHYCARDIA
     Dosage: TOTAL DAILY DOSE: 5 MG
     Route: 048
     Dates: start: 20061101
  4. ESOMEPRAZOLE MAGNESIUM [Concomitant]
     Indication: DYSPEPSIA
     Dosage: TOTAL DAILY DOSE: 20 MG
     Route: 048
     Dates: start: 20061201
  5. FENTANYL [Concomitant]
     Indication: PAIN
     Route: 061
     Dates: start: 20061201
  6. PARACETAMOL [Concomitant]
     Indication: PAIN
     Dosage: TOTAL DAILY DOSE: 1.5 G
     Route: 048
     Dates: start: 20061201
  7. METAMIZOLE SODIUM MONOHYDRATE [Concomitant]
     Indication: PAIN
     Route: 048
     Dates: start: 20061201
  8. ZOLPIDEM TARTRATE [Concomitant]
     Indication: SLEEP DISORDER
     Dosage: TOTAL DAILY DOSE: 10 MG
     Route: 048
     Dates: start: 20070101
  9. LEVOTHYROXINE SODIUM [Concomitant]
     Indication: HYPOTHYROIDISM
     Dosage: TOTAL DAILY DOSE: 50 ?G
     Route: 048
     Dates: start: 20070301
  10. AMITRIPTYLINE HYDROCHLORIDE [Concomitant]
     Indication: PAIN
     Dosage: TOTAL DAILY DOSE: 30 MG
     Route: 048
     Dates: start: 20070201

REACTIONS (1)
  - PSORIASIS [None]
